FAERS Safety Report 22149935 (Version 2)
Quarter: 2023Q2

REPORT INFORMATION
  Report Type: Spontaneous
  Country: JP (occurrence: JP)
  Receive Date: 20230329
  Receipt Date: 20230503
  Transmission Date: 20230722
  Serious: Yes (Hospitalization)
  Sender: FDA-Public Use
  Company Number: JP-JNJFOC-20230371078

PATIENT
  Sex: Male

DRUGS (1)
  1. CONCERTA [Suspect]
     Active Substance: METHYLPHENIDATE HYDROCHLORIDE
     Indication: Product used for unknown indication
     Dosage: DOSE UNKNOWN
     Route: 048

REACTIONS (1)
  - Joint injury [Recovered/Resolved]
